FAERS Safety Report 5842616-1 (Version None)
Quarter: 2008Q3

REPORT INFORMATION
  Report Type: 
  Country: None (occurrence: None)
  Receive Date: 20080812
  Receipt Date: 20080804
  Transmission Date: 20090109
  Serious: Yes (Hospitalization)
  Sender: FDA-Public Use
  Company Number: US-GILEAD-2008-0017144

PATIENT
  Sex: Female
  Weight: 148 kg

DRUGS (7)
  1. LETAIRIS [Suspect]
     Indication: PULMONARY ARTERIAL HYPERTENSION
     Route: 048
     Dates: start: 20080508
  2. REVATIO [Concomitant]
     Route: 048
  3. L-LYSINE [Concomitant]
     Route: 048
  4. CALCIUM +D [Concomitant]
     Route: 048
  5. MULTI-VITAMIN [Concomitant]
     Route: 048
  6. TRIAMTERENE AND HYDROCHLOROTHIAZIDE [Concomitant]
     Dosage: 37.5-25 MG
     Route: 048
  7. ZEBATA [Concomitant]
     Route: 048

REACTIONS (1)
  - PNEUMONIA [None]
